FAERS Safety Report 18508014 (Version 2)
Quarter: 2020Q4

REPORT INFORMATION
  Report Type: Spontaneous
  Country: US (occurrence: US)
  Receive Date: 20201116
  Receipt Date: 20201117
  Transmission Date: 20210114
  Serious: Yes (Death)
  Sender: FDA-Public Use
  Company Number: US-PFIZER INC-2020258358

PATIENT
  Age: 76 Year
  Sex: Female

DRUGS (3)
  1. ONPATTRO [Concomitant]
     Active Substance: PATISIRAN SODIUM
     Indication: LIVER DISORDER
     Dosage: UNK (INFUSION)
  2. ONPATTRO [Concomitant]
     Active Substance: PATISIRAN SODIUM
     Indication: AMYLOIDOSIS
  3. VYNDAMAX [Suspect]
     Active Substance: TAFAMIDIS
     Dosage: 61 MG

REACTIONS (1)
  - Death [Fatal]

NARRATIVE: CASE EVENT DATE: 2019
